FAERS Safety Report 6177767-8 (Version None)
Quarter: 2009Q2

REPORT INFORMATION
  Report Type: 
  Country: None (occurrence: None)
  Receive Date: 20090501
  Receipt Date: 20090501
  Transmission Date: 20091009
  Serious: No
  Sender: FDA-Public Use
  Company Number: None

PATIENT
  Age: 78 Year
  Sex: Male

DRUGS (8)
  1. REGULAR INSULIN [Suspect]
     Indication: TYPE 1 DIABETES MELLITUS
     Dosage: 16 UNITS + 8U/HR IV
     Route: 042
     Dates: start: 20090325
  2. HEPARIN [Concomitant]
  3. CINACALCET [Concomitant]
  4. LANSOPRAZOLE [Concomitant]
  5. SERTRALINE HCL [Concomitant]
  6. SEVELAMER [Concomitant]
  7. SIMVASTATIN [Concomitant]
  8. DEXAMETHASONE 4MG TAB [Concomitant]

REACTIONS (2)
  - BLOOD GLUCOSE DECREASED [None]
  - REFUSAL OF TREATMENT BY PATIENT [None]
